FAERS Safety Report 8390111-0 (Version None)
Quarter: 2012Q2

REPORT INFORMATION
  Report Type: 
  Country: None (occurrence: None)
  Receive Date: 20120529
  Receipt Date: 20120521
  Transmission Date: 20120825
  Serious: Yes (Hospitalization)
  Sender: FDA-Public Use
  Company Number: PHHY2012JP020463

PATIENT
  Sex: Female

DRUGS (5)
  1. FAMOTIDINE [Concomitant]
     Dosage: 20 MG, UNK
     Route: 048
     Dates: start: 20100101
  2. SINGULAIR [Concomitant]
     Dosage: 10 MG, UNK
     Route: 048
     Dates: start: 20100121
  3. EXELON [Suspect]
     Indication: DEMENTIA
     Dosage: 9 MG/24 HOURS
     Route: 062
     Dates: start: 20120229, end: 20120306
  4. THEO-DUR [Concomitant]
     Dosage: 100 MG, UNK
     Route: 048
     Dates: start: 20100121
  5. ARICEPT [Concomitant]
     Route: 048

REACTIONS (2)
  - ASTHMA [None]
  - HEART RATE INCREASED [None]
